FAERS Safety Report 13662344 (Version 6)
Quarter: 2017Q4

REPORT INFORMATION
  Report Type: Spontaneous
  Country: US (occurrence: US)
  Receive Date: 20170617
  Receipt Date: 20171225
  Transmission Date: 20180320
  Serious: Yes (Other)
  Sender: FDA-Public Use
  Company Number: PHEH2017US018499

PATIENT
  Sex: Female

DRUGS (4)
  1. ONDANSETRON [Suspect]
     Active Substance: ONDANSETRON
     Indication: VOMITING IN PREGNANCY
     Dosage: 4 MG, Q4H, PRN
     Route: 048
     Dates: start: 20120617, end: 20120617
  2. ZOFRAN [Suspect]
     Active Substance: ONDANSETRON HYDROCHLORIDE
     Indication: VOMITING IN PREGNANCY
     Dosage: 4 MG, UNK
     Route: 042
     Dates: start: 20111203, end: 20111203
  3. ZOFRAN [Suspect]
     Active Substance: ONDANSETRON HYDROCHLORIDE
     Dosage: 04 MG PER 02 ML, Q6H
     Route: 042
     Dates: start: 20120619, end: 20120619
  4. ONDANSETRON [Suspect]
     Active Substance: ONDANSETRON
     Indication: VOMITING IN PREGNANCY
     Dosage: 4 MG, UNK
     Route: 048
     Dates: start: 20111203

REACTIONS (26)
  - Gastroenteritis bacterial [Unknown]
  - Hypertension [Unknown]
  - Neck pain [Unknown]
  - Rhinitis allergic [Unknown]
  - Dizziness [Unknown]
  - Emotional distress [Unknown]
  - Headache [Unknown]
  - Product use in unapproved indication [Unknown]
  - Cardiac murmur [Unknown]
  - Dyspnoea [Unknown]
  - Seizure [Unknown]
  - Uterine contractions during pregnancy [Unknown]
  - Back pain [Unknown]
  - Bronchitis [Unknown]
  - Hyperthyroidism [Unknown]
  - Maternal exposure during pregnancy [Unknown]
  - Dehydration [Unknown]
  - Arthritis [Unknown]
  - Gastroenteritis [Unknown]
  - Injury [Unknown]
  - Parkinson^s disease [Unknown]
  - Fall [Unknown]
  - Abdominal pain [Unknown]
  - Diarrhoea [Unknown]
  - Pre-eclampsia [Unknown]
  - Palpitations [Unknown]
